FAERS Safety Report 9968427 (Version 1)
Quarter: 2014Q1

REPORT INFORMATION
  Report Type: Report from Study
  Country: US (occurrence: US)
  Receive Date: 20140306
  Receipt Date: 20140306
  Transmission Date: 20141002
  Serious: No
  Sender: FDA-Public Use
  Company Number: US-ABBVIE-13P-163-1143041-00

PATIENT
  Age: 49 Year
  Sex: Male

DRUGS (3)
  1. HUMIRA [Suspect]
     Dosage: DAY 1
     Route: 058
  2. HUMIRA [Suspect]
     Dosage: DAY 8
     Route: 058
  3. HUMIRA [Suspect]
     Dosage: DAY 22
     Route: 058

REACTIONS (2)
  - Respiratory tract congestion [Unknown]
  - Unevaluable event [Unknown]
